FAERS Safety Report 17713613 (Version 1)
Quarter: 2020Q2

REPORT INFORMATION
  Report Type: Spontaneous
  Country: FR (occurrence: FR)
  Receive Date: 20200427
  Receipt Date: 20200427
  Transmission Date: 20200714
  Serious: Yes (Hospitalization)
  Sender: FDA-Public Use
  Company Number: FR-PFIZER INC-2020166838

PATIENT
  Age: 37 Year
  Sex: Female
  Weight: 62.5 kg

DRUGS (4)
  1. LYRICA [Suspect]
     Active Substance: PREGABALIN
     Dosage: 2 DF, 1X/DAY
     Route: 048
     Dates: start: 201910, end: 201910
  2. ZELBORAF [Suspect]
     Active Substance: VEMURAFENIB
     Indication: NODULAR MELANOMA
     Dosage: 1920 MG, 1X/DAY
     Route: 048
     Dates: start: 20191011, end: 20191028
  3. CALCIDOSE [CALCIUM CARBONATE] [Concomitant]
     Active Substance: CALCIUM CARBONATE
     Dosage: UNK
  4. COTELLIC [Suspect]
     Active Substance: COBIMETINIB
     Indication: NODULAR MELANOMA
     Dosage: 60 MG, 1X/DAY
     Route: 048
     Dates: start: 20191011, end: 20191028

REACTIONS (1)
  - Drug reaction with eosinophilia and systemic symptoms [Recovered/Resolved]

NARRATIVE: CASE EVENT DATE: 20191018
